FAERS Safety Report 14081335 (Version 10)
Quarter: 2019Q2

REPORT INFORMATION
  Report Type: Report from Study
  Country: US (occurrence: US)
  Receive Date: 20171012
  Receipt Date: 20190404
  Transmission Date: 20190711
  Serious: Yes (Hospitalization, Other)
  Sender: FDA-Public Use
  Company Number: US-ACTELION-A-US2017-158137

PATIENT
  Age: 59 Year
  Sex: Female
  Weight: 90.25 kg

DRUGS (5)
  1. ADEMPAS [Suspect]
     Active Substance: RIOCIGUAT
     Indication: PRODUCT USED FOR UNKNOWN INDICATION
     Dosage: 1 MG, TID
     Route: 065
  2. ELIQUIS [Concomitant]
     Active Substance: APIXABAN
  3. OPSUMIT [Suspect]
     Active Substance: MACITENTAN
     Dosage: 10 MG, QD
     Route: 048
  4. OPSUMIT [Suspect]
     Active Substance: MACITENTAN
     Indication: PULMONARY ARTERIAL HYPERTENSION
     Dosage: 10 MG, QD
     Route: 048
  5. ADEMPAS [Suspect]
     Active Substance: RIOCIGUAT
     Dosage: .5 MG, TID
     Route: 065

REACTIONS (13)
  - Vascular pseudoaneurysm [Unknown]
  - Fatigue [Unknown]
  - Cardiac pacemaker insertion [Unknown]
  - Bronchitis [Unknown]
  - Hypotension [Unknown]
  - Pneumonia [Unknown]
  - Malaise [Unknown]
  - Musculoskeletal pain [Unknown]
  - Nausea [Not Recovered/Not Resolved]
  - Chest pain [Unknown]
  - Dyspnoea [Unknown]
  - Wrong dose [Unknown]
  - Epistaxis [Unknown]

NARRATIVE: CASE EVENT DATE: 201709
